FAERS Safety Report 12207725 (Version 2)
Quarter: 2016Q1

REPORT INFORMATION
  Report Type: Spontaneous
  Country: ES (occurrence: ES)
  Receive Date: 20160324
  Receipt Date: 20160328
  Transmission Date: 20160526
  Serious: Yes (Life-Threatening, Congenital Anomaly, Other)
  Sender: FDA-Public Use
  Company Number: ES-TEVA-641475ISR

PATIENT

DRUGS (1)
  1. DICLOFENAC [Suspect]
     Active Substance: DICLOFENAC
     Indication: PRODUCT USED FOR UNKNOWN INDICATION
     Route: 064

REACTIONS (4)
  - Ductus arteriosus stenosis foetal [Unknown]
  - Congenital pulmonary hypertension [Unknown]
  - Foetal exposure during pregnancy [Unknown]
  - Premature baby [Unknown]
